FAERS Safety Report 5817471-6 (Version None)
Quarter: 2008Q3

REPORT INFORMATION
  Report Type: 
  Country: None (occurrence: None)
  Receive Date: 20080722
  Receipt Date: 20080711
  Transmission Date: 20090109
  Serious: Yes (Life-Threatening, Hospitalization)
  Sender: FDA-Public Use
  Company Number: JP-BAYER-200810963BYL

PATIENT
  Age: 60 Year
  Sex: Male
  Weight: 49 kg

DRUGS (6)
  1. NEXAVAR [Suspect]
     Indication: RENAL CELL CARCINOMA STAGE IV
     Dosage: TOTAL DAILY DOSE: 800 MG  UNIT DOSE: 200 MG
     Route: 048
     Dates: start: 20080421, end: 20080511
  2. NEXAVAR [Suspect]
     Dosage: TOTAL DAILY DOSE: 400 MG  UNIT DOSE: 200 MG
     Route: 048
     Dates: start: 20080512, end: 20080517
  3. TAGAMET [Concomitant]
     Indication: PROPHYLAXIS
     Route: 048
     Dates: start: 20080421
  4. ALOSENN [Concomitant]
     Indication: CONSTIPATION
     Route: 048
     Dates: start: 20080421
  5. PARIET [Concomitant]
     Indication: PROPHYLAXIS
     Route: 048
     Dates: start: 20080518
  6. RIBALL [Concomitant]
     Route: 048
     Dates: start: 20080520

REACTIONS (7)
  - ANGINA PECTORIS [None]
  - ASPARTATE AMINOTRANSFERASE INCREASED [None]
  - CARDIAC FAILURE [None]
  - DIARRHOEA [None]
  - MALAISE [None]
  - PALMAR-PLANTAR ERYTHRODYSAESTHESIA SYNDROME [None]
  - PLEURAL EFFUSION [None]
